FAERS Safety Report 12119162 (Version 1)
Quarter: 2016Q1

REPORT INFORMATION
  Report Type: Spontaneous
  Country: US (occurrence: None)
  Receive Date: 20160225
  Receipt Date: 20160225
  Transmission Date: 20160526
  Serious: No
  Sender: FDA-Public Use
  Company Number: None

PATIENT
  Age: 87 Year
  Sex: Male
  Weight: 74.84 kg

DRUGS (1)
  1. VANCOMYCIN 1GM MYLAN [Suspect]
     Active Substance: VANCOMYCIN
     Indication: CELLULITIS STAPHYLOCOCCAL
     Route: 042
     Dates: start: 20160202, end: 20160211

REACTIONS (4)
  - Dizziness [None]
  - Malaise [None]
  - Pruritus [None]
  - Hyperhidrosis [None]

NARRATIVE: CASE EVENT DATE: 20160211
